FAERS Safety Report 7396164-0 (Version None)
Quarter: 2011Q2

REPORT INFORMATION
  Report Type: 
  Country: None (occurrence: None)
  Receive Date: 20110406
  Receipt Date: 20110324
  Transmission Date: 20111010
  Serious: Yes (Hospitalization)
  Sender: FDA-Public Use
  Company Number: US-ELI_LILLY_AND_COMPANY-US201103008056

PATIENT

DRUGS (1)
  1. FORTEO [Suspect]
     Indication: OSTEOPOROSIS
     Dosage: 20 UG, QD
     Dates: start: 20110315

REACTIONS (6)
  - HOSPITALISATION [None]
  - OEDEMA PERIPHERAL [None]
  - NECK PAIN [None]
  - DIZZINESS [None]
  - HEADACHE [None]
  - INJECTION SITE HAEMATOMA [None]
